FAERS Safety Report 5145077-3 (Version None)
Quarter: 2006Q4

REPORT INFORMATION
  Report Type: 
  Country: None (occurrence: None)
  Receive Date: 20061107
  Receipt Date: 20061101
  Transmission Date: 20070319
  Serious: Yes (Hospitalization)
  Sender: FDA-Public Use
  Company Number: US-BRISTOL-MYERS SQUIBB COMPANY-13564307

PATIENT
  Sex: Male

DRUGS (2)
  1. STADOL [Suspect]
     Indication: LABOUR PAIN
     Route: 064
     Dates: start: 20051215, end: 20051215
  2. NARCAN [Concomitant]
     Indication: FOETAL DISTRESS SYNDROME
     Dates: start: 20051215, end: 20051215

REACTIONS (1)
  - FOETAL DISTRESS SYNDROME [None]
